FAERS Safety Report 13653605 (Version 4)
Quarter: 2018Q1

REPORT INFORMATION
  Report Type: Spontaneous
  Country: US (occurrence: US)
  Receive Date: 20170614
  Receipt Date: 20180131
  Transmission Date: 20180508
  Serious: Yes (Other)
  Sender: FDA-Public Use
  Company Number: US-ACORDA-ACO_138856_2017

PATIENT
  Age: 73 Year
  Sex: Female

DRUGS (1)
  1. AMPYRA [Suspect]
     Active Substance: DALFAMPRIDINE
     Indication: MULTIPLE SCLEROSIS
     Dosage: 10 MG, Q 12 HRS
     Route: 065
     Dates: start: 20160609

REACTIONS (4)
  - Seizure [Unknown]
  - Urinary tract infection [Unknown]
  - Multiple sclerosis relapse [Unknown]
  - Contraindicated product administered [Recovered/Resolved]

NARRATIVE: CASE EVENT DATE: 20170528
